FAERS Safety Report 11932374 (Version 2)
Quarter: 2016Q1

REPORT INFORMATION
  Report Type: Spontaneous
  Country: BR (occurrence: BR)
  Receive Date: 20160120
  Receipt Date: 20160128
  Transmission Date: 20160526
  Serious: Yes (Other)
  Sender: FDA-Public Use
  Company Number: BR-ELI_LILLY_AND_COMPANY-BR201601006829

PATIENT
  Age: 32 Year
  Sex: Female

DRUGS (3)
  1. HUMALOG [Suspect]
     Active Substance: INSULIN LISPRO
     Indication: TYPE 1 DIABETES MELLITUS
     Dosage: 0.9 IU, EVERY HOUR
     Route: 058
     Dates: start: 20160114
  2. HUMALOG [Suspect]
     Active Substance: INSULIN LISPRO
     Dosage: 23 IU, IN EACH MEAL ACCORDING TO CARBO COUNTING
     Route: 058
  3. HUMALOG [Suspect]
     Active Substance: INSULIN LISPRO
     Dosage: 1.0 IU, EVERY HOUR
     Route: 058

REACTIONS (5)
  - Diabetic nephropathy [Unknown]
  - Diabetic neuropathy [Unknown]
  - Drug ineffective [Unknown]
  - Blood glucose increased [Recovering/Resolving]
  - Dehydration [Unknown]

NARRATIVE: CASE EVENT DATE: 201601
